FAERS Safety Report 4454359-X (Version None)
Quarter: 2004Q3

REPORT INFORMATION
  Report Type: 
  Country: None (occurrence: None)
  Receive Date: 20040920
  Receipt Date: 20040803
  Transmission Date: 20050211
  Serious: Yes (Hospitalization)
  Sender: FDA-Public Use
  Company Number: US-MERCK-0408USA00320

PATIENT
  Age: 89 Year
  Sex: Female
  Weight: 59 kg

DRUGS (6)
  1. BENICAR [Concomitant]
     Route: 065
  2. SEROQUEL [Concomitant]
     Route: 065
  3. ZOLOFT [Concomitant]
     Route: 065
  4. BEXTRA [Concomitant]
     Indication: ARTHRITIS
     Route: 065
     Dates: start: 20030101, end: 20040701
  5. FOSAMAX [Suspect]
     Indication: OSTEOPOROSIS
     Route: 048
     Dates: start: 20020301, end: 20040723
  6. LANOXIN [Concomitant]
     Route: 065

REACTIONS (4)
  - ANAEMIA [None]
  - GASTRIC HAEMORRHAGE [None]
  - GASTRIC ULCER [None]
  - NAUSEA [None]
